FAERS Safety Report 4895275-9 (Version None)
Quarter: 2006Q1

REPORT INFORMATION
  Report Type: 
  Country: None (occurrence: None)
  Receive Date: 20060130
  Receipt Date: 20060110
  Transmission Date: 20060701
  Serious: Yes (Hospitalization)
  Sender: FDA-Public Use
  Company Number: DE-GLAXOSMITHKLINE-D0048415A

PATIENT
  Age: 4 Year
  Sex: Female
  Weight: 15 kg

DRUGS (5)
  1. ELOBACT [Suspect]
     Indication: PNEUMONIA
     Dosage: 200MG TWICE PER DAY
     Route: 048
     Dates: start: 20060101, end: 20060110
  2. MARCUMAR [Suspect]
     Indication: ATRIAL THROMBOSIS
     Route: 048
     Dates: start: 20060105
  3. DECORTIN [Concomitant]
     Indication: BRONCHITIS
     Dosage: 75MG THREE TIMES PER DAY
     Route: 048
  4. SULTANOL [Concomitant]
     Indication: BRONCHITIS
     Route: 055
  5. ATROVENT [Concomitant]
     Indication: BRONCHITIS
     Route: 055

REACTIONS (2)
  - DRUG INTERACTION [None]
  - INTERNATIONAL NORMALISED RATIO INCREASED [None]
